FAERS Safety Report 5818780-7 (Version None)
Quarter: 2008Q3

REPORT INFORMATION
  Report Type: 
  Country: None (occurrence: None)
  Receive Date: 20080723
  Receipt Date: 20070918
  Transmission Date: 20090109
  Serious: Yes (Other)
  Sender: FDA-Public Use
  Company Number: CA-TYCO HEALTHCARE/MALLINCKRODT-T200801186

PATIENT

DRUGS (1)
  1. OPTIRAY 300 [Suspect]
     Indication: ANGIOGRAM
     Dosage: 75 - 100 ML, SINGLE

REACTIONS (1)
  - NEPHROPATHY TOXIC [None]
